FAERS Safety Report 16872922 (Version 4)
Quarter: 2019Q4

REPORT INFORMATION
  Report Type: Spontaneous
  Country: TW (occurrence: TW)
  Receive Date: 20191001
  Receipt Date: 20191230
  Transmission Date: 20200122
  Serious: No
  Sender: FDA-Public Use
  Company Number: TW-BEH-2019107409

PATIENT
  Age: 12 Year
  Sex: Male
  Weight: 34.2 kg

DRUGS (1)
  1. PRIVIGEN [Suspect]
     Active Substance: HUMAN IMMUNOGLOBULIN G
     Dosage: 30 GRAM, OVER 2 DAYS (1G/KG/DAY 12 HRS FOR 2 DAYS)
     Route: 042
     Dates: start: 20190921, end: 20190924

REACTIONS (3)
  - Vomiting [Recovered/Resolved]
  - Pyrexia [Recovered/Resolved]
  - Headache [Recovered/Resolved]

NARRATIVE: CASE EVENT DATE: 201909
